FAERS Safety Report 22347247 (Version 1)
Quarter: 2023Q2

REPORT INFORMATION
  Report Type: Spontaneous
  Country: FR (occurrence: FR)
  Receive Date: 20230521
  Receipt Date: 20230521
  Transmission Date: 20230722
  Serious: Yes (Hospitalization, Other)
  Sender: FDA-Public Use
  Company Number: FR-AFSSAPS-PP2023000704

PATIENT
  Age: 1 Month
  Sex: Male

DRUGS (3)
  1. CEFTAZIDIME [Suspect]
     Active Substance: CEFTAZIDIME
     Indication: Infection
     Dosage: 62 MILLIGRAM, 3 TIMES A DAY
     Route: 042
     Dates: start: 20230220, end: 20230222
  2. METRONIDAZOLE [Suspect]
     Active Substance: METRONIDAZOLE
     Indication: Infection
     Dosage: 9.3 MILLIGRAM, TWO TIMES A DAY
     Route: 042
     Dates: start: 20230220, end: 20230222
  3. RIFAMPIN [Suspect]
     Active Substance: RIFAMPIN
     Indication: Congenital tuberculosis
     Dosage: UNK,10MG/KG/JOUR
     Route: 042
     Dates: start: 20230212, end: 20230222

REACTIONS (1)
  - Pulmonary haemorrhage [Recovered/Resolved]

NARRATIVE: CASE EVENT DATE: 20230222
